FAERS Safety Report 18398446 (Version 1)
Quarter: 2020Q4

REPORT INFORMATION
  Report Type: Other
  Country: SE (occurrence: SE)
  Receive Date: 20201019
  Receipt Date: 20201019
  Transmission Date: 20210114
  Serious: Yes (Hospitalization)
  Sender: FDA-Public Use
  Company Number: SE-ASTELLAS-2020US036286

PATIENT
  Age: 73 Year
  Sex: Female

DRUGS (5)
  1. TECHNESCAN SESTAMIBI 1 MG KIT F?R EIN RADIOAKTIVES ARZNEIMITTEL (TETRAKIS(2-METHOXYISOBUTYLISOCYANIDE)COPPER(I) TETRAFLUOROBORATE) [Suspect]
     Active Substance: TETRAKIS(2-METHOXYISOBUTYLISOCYANIDE)COPPER(I) TETRAFLUOROBORATE
     Indication: SCAN MYOCARDIAL PERFUSION
     Route: 042
     Dates: start: 20200814, end: 20200814
  2. REGADENOSON [Suspect]
     Active Substance: REGADENOSON
     Indication: SCAN MYOCARDIAL PERFUSION
     Dosage: UNK, UNK, SINGLE (ONCE)
     Route: 042
     Dates: start: 20200814, end: 20200814
  3. REGADENOSON [Suspect]
     Active Substance: REGADENOSON
     Indication: SCAN MYOCARDIAL PERFUSION
     Dosage: UNK, UNK, SINGLE (ONCE)
     Route: 042
     Dates: start: 20200814, end: 20200814
  4. REGADENOSON [Suspect]
     Active Substance: REGADENOSON
     Indication: SCAN MYOCARDIAL PERFUSION
     Dosage: UNK, UNK, SINGLE (ONCE)
     Route: 042
     Dates: start: 20200814, end: 20200814
  5. REGADENOSON [Suspect]
     Active Substance: REGADENOSON
     Indication: SCAN MYOCARDIAL PERFUSION
     Dosage: UNK, UNK, SINGLE (ONCE)
     Route: 042
     Dates: start: 20200814, end: 20200814

REACTIONS (3)
  - Lip swelling [Recovered/Resolved]
  - Skin reaction [Recovered/Resolved]
  - Drug eruption [Recovered/Resolved]

NARRATIVE: CASE EVENT DATE: 20200814
